FAERS Safety Report 7158356-5 (Version None)
Quarter: 2010Q4

REPORT INFORMATION
  Report Type: 
  Country: None (occurrence: None)
  Receive Date: 20101214
  Receipt Date: 20100712
  Transmission Date: 20110411
  Serious: Yes (Other)
  Sender: FDA-Public Use
  Company Number: US-PFIZER INC-2010087456

PATIENT
  Sex: Female
  Weight: 77.098 kg

DRUGS (7)
  1. ARTHROTEC [Suspect]
     Indication: PAIN
     Dosage: UNK
     Route: 048
     Dates: start: 20100707, end: 20100707
  2. ARTHROTEC [Suspect]
     Indication: INFLAMMATION
  3. NEXIUM [Concomitant]
     Indication: GASTRIC DISORDER
     Dosage: UNK
     Route: 048
  4. CRESTOR [Concomitant]
     Indication: BLOOD CHOLESTEROL INCREASED
     Dosage: 5 MG, 1X/DAY
     Route: 048
  5. ACETYLSALICYLIC ACID [Concomitant]
     Dosage: UNK
     Route: 048
  6. GELATIN [Concomitant]
     Dosage: UNK
     Route: 048
  7. BIOTIN [Concomitant]
     Dosage: UNK
     Route: 048

REACTIONS (1)
  - VAGINAL HAEMORRHAGE [None]
